FAERS Safety Report 23122655 (Version 1)
Quarter: 2023Q4

REPORT INFORMATION
  Report Type: Spontaneous
  Country: US (occurrence: US)
  Receive Date: 20231030
  Receipt Date: 20231030
  Transmission Date: 20240110
  Serious: No
  Sender: FDA-Public Use
  Company Number: US-UCBSA-2023001154

PATIENT
  Sex: Female

DRUGS (1)
  1. VIMPAT [Suspect]
     Active Substance: LACOSAMIDE
     Indication: Epilepsy
     Dosage: 150 MILLIGRAM, 3X/DAY (TID)

REACTIONS (3)
  - Off label use [Unknown]
  - Inability to afford medication [Unknown]
  - Product availability issue [Unknown]
